FAERS Safety Report 10180376 (Version 1)
Quarter: 2014Q2

REPORT INFORMATION
  Report Type: Spontaneous
  Country: US (occurrence: None)
  Receive Date: 20140425
  Receipt Date: 20140425
  Transmission Date: 20141212
  Serious: No
  Sender: FDA-Public Use
  Company Number: AP356-00399-SPO-US

PATIENT
  Sex: Female

DRUGS (2)
  1. BELVIQ (LORCASERIN HYDROCHLORIDE) [Suspect]
     Indication: WEIGHT DECREASED
     Route: 048
     Dates: start: 2014, end: 2014
  2. VITAMINS/HERBAL (HERBALS NOS W/VITAMINS NOS) [Concomitant]

REACTIONS (1)
  - Breast enlargement [None]
